FAERS Safety Report 21640442 (Version 1)
Quarter: 2022Q4

REPORT INFORMATION
  Report Type: Spontaneous
  Country: US (occurrence: US)
  Receive Date: 20221124
  Receipt Date: 20221124
  Transmission Date: 20230112
  Serious: No
  Sender: FDA-Public Use
  Company Number: US-BAUSCHBL-2022BNL002083

PATIENT
  Sex: Female

DRUGS (1)
  1. HYDROCORTISONE\NEOMYCIN SULFATE\POLYMYXIN B SULFATE [Suspect]
     Active Substance: HYDROCORTISONE\NEOMYCIN SULFATE\POLYMYXIN B SULFATE
     Indication: Dry eye
     Route: 047
     Dates: start: 2022

REACTIONS (5)
  - Exposure via eye contact [Unknown]
  - Instillation site irritation [Recovered/Resolved]
  - Instillation site pain [Recovered/Resolved]
  - Wrong product administered [Unknown]
  - Incorrect route of product administration [Unknown]

NARRATIVE: CASE EVENT DATE: 20220101
